FAERS Safety Report 7832636-X (Version None)
Quarter: 2011Q4

REPORT INFORMATION
  Report Type: 
  Country: None (occurrence: None)
  Receive Date: 20111024
  Receipt Date: 20111014
  Transmission Date: 20120403
  Serious: No
  Sender: FDA-Public Use
  Company Number: US-BIOGENIDEC-2011BI034156

PATIENT
  Age: 35 Year
  Sex: Female

DRUGS (3)
  1. AVONEX [Concomitant]
     Indication: MULTIPLE SCLEROSIS
     Route: 030
     Dates: start: 20100719
  2. TYSABRI [Suspect]
     Indication: MULTIPLE SCLEROSIS
     Route: 042
     Dates: start: 20110715
  3. AVONEX [Concomitant]
     Route: 030
     Dates: start: 20030404

REACTIONS (3)
  - CERVICAL DYSPLASIA [None]
  - GENITAL DISORDER FEMALE [None]
  - SMEAR CERVIX ABNORMAL [None]
